FAERS Safety Report 5475801-1 (Version None)
Quarter: 2007Q4

REPORT INFORMATION
  Report Type: 
  Country: None (occurrence: None)
  Receive Date: 20071003
  Receipt Date: 20070927
  Transmission Date: 20080405
  Serious: Yes (Hospitalization)
  Sender: FDA-Public Use
  Company Number: A0684730A

PATIENT
  Age: 50 Year
  Sex: Female

DRUGS (10)
  1. AVANDIA [Suspect]
     Dosage: 4MG TWICE PER DAY
     Route: 048
     Dates: start: 20001001, end: 20010801
  2. CELEBREX [Concomitant]
  3. SKELAXIN [Concomitant]
  4. ACCUPRIL [Concomitant]
  5. TOPROL-XL [Concomitant]
  6. HUMULIN R [Concomitant]
  7. PREMARIN [Concomitant]
  8. DURADRIN [Concomitant]
  9. FUROSEMIDE [Concomitant]
  10. POTASSIUM CHLORIDE [Concomitant]

REACTIONS (3)
  - CEREBROVASCULAR ACCIDENT [None]
  - CHOKING SENSATION [None]
  - COUGH [None]
